FAERS Safety Report 24861957 (Version 2)
Quarter: 2025Q1

REPORT INFORMATION
  Report Type: Report from Study
  Country: US (occurrence: US)
  Receive Date: 20250120
  Receipt Date: 20250217
  Transmission Date: 20250409
  Serious: Yes (Other)
  Sender: UCB
  Company Number: US-UCBSA-2025002876

PATIENT
  Age: 44 Year
  Sex: Male

DRUGS (1)
  1. BIMEKIZUMAB [Suspect]
     Active Substance: BIMEKIZUMAB
     Indication: Psoriasis
     Dosage: 320 MILLIGRAM, EV 4 WEEKS (2 X160 MG/ML 1ML WKS 0,4)
     Dates: start: 20241105, end: 20241207

REACTIONS (6)
  - Pneumonia [Recovered/Resolved]
  - Influenza [Recovered/Resolved]
  - Upper respiratory tract infection [Recovered/Resolved]
  - Gastroenteritis viral [Recovered/Resolved]
  - Sinusitis [Recovered/Resolved]
  - Norovirus infection [Recovered/Resolved]

NARRATIVE: CASE EVENT DATE: 20241225
